FAERS Safety Report 9781607 (Version 1)
Quarter: 2013Q4

REPORT INFORMATION
  Report Type: Spontaneous
  Country: US (occurrence: US)
  Receive Date: 20131224
  Receipt Date: 20131224
  Transmission Date: 20140711
  Serious: No
  Sender: FDA-Public Use
  Company Number: US-TEVA-445650USA

PATIENT
  Sex: Male
  Weight: 61.29 kg

DRUGS (6)
  1. PROAIR HFA [Suspect]
     Indication: ASTHMA
     Route: 055
     Dates: start: 201304
  2. MILK THISTLE [Concomitant]
     Indication: HEPATIC ENZYME ABNORMAL
  3. SAM-E [Concomitant]
     Indication: HEPATIC ENZYME ABNORMAL
  4. VITAMIN C [Concomitant]
     Indication: SUPPLEMENTATION THERAPY
  5. FISH OIL [Concomitant]
     Indication: SUPPLEMENTATION THERAPY
  6. OMEGA-3 [Concomitant]
     Indication: SUPPLEMENTATION THERAPY

REACTIONS (3)
  - Asthma [Recovered/Resolved]
  - Intentional drug misuse [Not Recovered/Not Resolved]
  - Wheezing [Not Recovered/Not Resolved]
